FAERS Safety Report 20991786 (Version 1)
Quarter: 2022Q2

REPORT INFORMATION
  Report Type: Spontaneous
  Country: ES (occurrence: ES)
  Receive Date: 20220622
  Receipt Date: 20220622
  Transmission Date: 20220721
  Serious: Yes (Other)
  Sender: FDA-Public Use
  Company Number: ES-STRIDES ARCOLAB LIMITED-2022SP007408

PATIENT

DRUGS (31)
  1. PREDNISOLONE [Suspect]
     Active Substance: PREDNISOLONE
     Indication: Acute lymphocytic leukaemia
     Dosage: UNK, (INDUCTION IA PHASE)
     Route: 048
  2. PREDNISOLONE [Suspect]
     Active Substance: PREDNISOLONE
     Dosage: UNK, (INDUCTION IA PHASE), (INTRAVENOUS PUSH)
     Route: 050
  3. PREDNISOLONE [Suspect]
     Active Substance: PREDNISOLONE
     Dosage: UNK, (INDUCTION IA PHASE)
     Route: 037
  4. PREDNISOLONE [Suspect]
     Active Substance: PREDNISOLONE
     Dosage: UNK, (INDUCTION IB PHASE)
     Route: 037
  5. PREDNISOLONE [Suspect]
     Active Substance: PREDNISOLONE
     Dosage: UNK, (CONSOLIDATION PHASE)
     Route: 037
  6. PREDNISOLONE [Suspect]
     Active Substance: PREDNISOLONE
     Dosage: UNK, (REINDUCTION PHASE)
     Route: 037
  7. DEXAMETHASONE [Suspect]
     Active Substance: DEXAMETHASONE
     Indication: Acute lymphocytic leukaemia
     Dosage: UNK, (REINDUCTION PHASE)
     Route: 048
  8. DEXAMETHASONE [Suspect]
     Active Substance: DEXAMETHASONE
     Dosage: UNK, (REINDUCTION PHASE), (INTRAVENOUS PUSH)
     Route: 050
  9. DOXORUBICIN [Suspect]
     Active Substance: DOXORUBICIN
     Indication: Acute lymphocytic leukaemia
     Dosage: UNK, (REINDUCTION PHASE; OVER 1 HOUR), (INTRAVENOUS PUSH)
     Route: 050
  10. VINCRISTINE [Suspect]
     Active Substance: VINCRISTINE
     Indication: Acute lymphocytic leukaemia
     Dosage: UNK, (INDUCTION IA PHASE), (INTRAVENOUS PUSH)
     Route: 050
  11. VINCRISTINE [Suspect]
     Active Substance: VINCRISTINE
     Dosage: UNK, (REINDUCTION PHASE), (INTRAVENOUS PUSH)
     Route: 050
  12. DAUNORUBICIN [Suspect]
     Active Substance: DAUNORUBICIN
     Indication: Acute lymphocytic leukaemia
     Dosage: UNK, (INDUCTION IA PHASE)
     Route: 042
  13. ASPARAGINASE [Suspect]
     Active Substance: ASPARAGINASE
     Indication: Acute lymphocytic leukaemia
     Dosage: UNK, (INDUCTION IA PHASE)
     Route: 030
  14. ASPARAGINASE [Suspect]
     Active Substance: ASPARAGINASE
     Dosage: UNK, (REINDUCTION PHASE)
     Route: 030
  15. METHOTREXATE [Suspect]
     Active Substance: METHOTREXATE
     Indication: Acute lymphocytic leukaemia
     Dosage: UNK, (INDUCTION IA PHASE)
     Route: 037
  16. METHOTREXATE [Suspect]
     Active Substance: METHOTREXATE
     Dosage: UNK, (INDUCTION IB PHASE)
     Route: 037
  17. METHOTREXATE [Suspect]
     Active Substance: METHOTREXATE
     Dosage: UNK, (CONSOLIDATION PHASE)
     Route: 037
  18. METHOTREXATE [Suspect]
     Active Substance: METHOTREXATE
     Dosage: UNK, (REINDUCTION PHASE)
     Route: 037
  19. METHOTREXATE [Suspect]
     Active Substance: METHOTREXATE
     Dosage: UNK, (CONSOLIDATION PHASE; OVER 24 HOURS)
     Route: 042
  20. CYTARABINE [Suspect]
     Active Substance: CYTARABINE
     Indication: Acute lymphocytic leukaemia
     Dosage: UNK, INDUCTION IA PHASE
     Route: 037
  21. CYTARABINE [Suspect]
     Active Substance: CYTARABINE
     Dosage: UNK, INDUCTION IB PHASE
     Route: 037
  22. CYTARABINE [Suspect]
     Active Substance: CYTARABINE
     Dosage: UNK, CONSOLIDATION PHASE
     Route: 037
  23. CYTARABINE [Suspect]
     Active Substance: CYTARABINE
     Dosage: UNK, REINDUCTION PHASE
     Route: 037
  24. CYTARABINE [Suspect]
     Active Substance: CYTARABINE
     Dosage: UNK, (INDUCTION IB PHASE; OVER 1 HOUR) (INTRAVENOUS INFUSION)
     Route: 050
  25. CYTARABINE [Suspect]
     Active Substance: CYTARABINE
     Dosage: UNK, (REINDUCTION PHASE) (INTRAVENOUS PUSH)
     Route: 050
  26. CYCLOPHOSPHAMIDE [Suspect]
     Active Substance: CYCLOPHOSPHAMIDE
     Indication: Acute lymphocytic leukaemia
     Dosage: UNK, (INDUCTION IB PHASE; OVER 1 HOUR
     Route: 042
  27. CYCLOPHOSPHAMIDE [Suspect]
     Active Substance: CYCLOPHOSPHAMIDE
     Dosage: UNK, (REINDUCTION PHASE; OVER 1 HOUR)
     Route: 042
  28. MERCAPTOPURINE [Suspect]
     Active Substance: MERCAPTOPURINE
     Indication: Acute lymphocytic leukaemia
     Dosage: UNK, (INDUCTION IB PHASE)
     Route: 048
  29. MERCAPTOPURINE [Suspect]
     Active Substance: MERCAPTOPURINE
     Dosage: UNK, (CONSOLIDATION PHASE)
     Route: 048
  30. THIOGUANINE ANHYDROUS [Suspect]
     Active Substance: THIOGUANINE ANHYDROUS
     Indication: Acute lymphocytic leukaemia
     Dosage: UNK, (REINDUCTION PHASE)
     Route: 048
  31. LEUCOVORIN [Concomitant]
     Active Substance: LEUCOVORIN
     Indication: Prophylaxis
     Dosage: UNK
     Route: 065

REACTIONS (1)
  - Cerebral venous sinus thrombosis [Unknown]
